FAERS Safety Report 19357463 (Version 1)
Quarter: 2021Q2

REPORT INFORMATION
  Report Type: Spontaneous
  Country: US (occurrence: US)
  Receive Date: 20210601
  Receipt Date: 20210601
  Transmission Date: 20210717
  Serious: Yes (Hospitalization, Other)
  Sender: FDA-Public Use
  Company Number: US-AUROBINDO-AUR-APL-2012-03750

PATIENT
  Age: 55 Year
  Sex: Female

DRUGS (6)
  1. RIBAVIRIN. [Suspect]
     Active Substance: RIBAVIRIN
     Indication: HEPATIC CIRRHOSIS
  2. PEGINTERFERON ALFA?2A. [Suspect]
     Active Substance: PEGINTERFERON ALFA-2A
     Indication: HEPATITIS C
     Dosage: UNK UNK,UNK,
     Route: 065
  3. PEGINTERFERON ALFA?2A. [Suspect]
     Active Substance: PEGINTERFERON ALFA-2A
     Indication: HEPATIC CIRRHOSIS
  4. RIBAVIRIN. [Suspect]
     Active Substance: RIBAVIRIN
     Indication: HEPATITIS C
     Dosage: UNK
     Route: 065
  5. TELAPREVIR [Suspect]
     Active Substance: TELAPREVIR
     Indication: HEPATIC CIRRHOSIS
  6. TELAPREVIR [Suspect]
     Active Substance: TELAPREVIR
     Indication: HEPATITIS C
     Dosage: UNK UNK,UNK,
     Route: 065

REACTIONS (11)
  - Chills [Unknown]
  - Drug eruption [Unknown]
  - Rash pruritic [Unknown]
  - Thrombocytopenia [Unknown]
  - Drug reaction with eosinophilia and systemic symptoms [Unknown]
  - Pyrexia [Unknown]
  - Aspartate aminotransferase increased [Unknown]
  - Myalgia [Unknown]
  - Skin plaque [Unknown]
  - Staphylococcal bacteraemia [Unknown]
  - Eosinophilia [Unknown]
